FAERS Safety Report 13661755 (Version 1)
Quarter: 2017Q2

REPORT INFORMATION
  Report Type: Spontaneous
  Country: US (occurrence: US)
  Receive Date: 20170616
  Receipt Date: 20170616
  Transmission Date: 20170830
  Serious: Yes (Hospitalization)
  Sender: FDA-Public Use
  Company Number: US-ELI_LILLY_AND_COMPANY-US201401009072

PATIENT
  Age: 73 Year
  Sex: Male

DRUGS (5)
  1. TAMSULOSIN [Concomitant]
     Active Substance: TAMSULOSIN
     Indication: PROSTATE EXAMINATION
  2. EFFIENT [Suspect]
     Active Substance: PRASUGREL HYDROCHLORIDE
     Indication: STENT PLACEMENT
     Dosage: 10 MG, UNK
     Route: 048
     Dates: start: 2012
  3. DUTASTERIDE. [Concomitant]
     Active Substance: DUTASTERIDE
     Indication: PROSTATE EXAMINATION
  4. EFFIENT [Suspect]
     Active Substance: PRASUGREL HYDROCHLORIDE
     Indication: CORONARY ARTERY OCCLUSION
  5. ASPIRIN                            /00002701/ [Concomitant]
     Active Substance: ASPIRIN
     Indication: PRODUCT USED FOR UNKNOWN INDICATION
     Dosage: 325 MG, BID
     Route: 065

REACTIONS (4)
  - Sleep disorder [Not Recovered/Not Resolved]
  - Angina pectoris [Recovered/Resolved]
  - Meniscus injury [Not Recovered/Not Resolved]
  - Drug dispensing error [Recovered/Resolved]

NARRATIVE: CASE EVENT DATE: 20140122
